FAERS Safety Report 26116071 (Version 1)
Quarter: 2025Q4

REPORT INFORMATION
  Report Type: Spontaneous
  Country: US (occurrence: US)
  Receive Date: 20251203
  Receipt Date: 20251203
  Transmission Date: 20260118
  Serious: No
  Sender: ROCHE
  Company Number: US-ROCHE-10000431878

PATIENT
  Age: 83 Year
  Sex: Female

DRUGS (10)
  1. VABYSMO [Suspect]
     Active Substance: FARICIMAB-SVOA
     Indication: Neovascular age-related macular degeneration
     Route: 065
  2. VABYSMO [Suspect]
     Active Substance: FARICIMAB-SVOA
     Route: 065
  3. VABYSMO [Suspect]
     Active Substance: FARICIMAB-SVOA
     Route: 065
  4. VABYSMO [Suspect]
     Active Substance: FARICIMAB-SVOA
     Route: 065
  5. VABYSMO [Suspect]
     Active Substance: FARICIMAB-SVOA
     Route: 065
  6. VABYSMO [Suspect]
     Active Substance: FARICIMAB-SVOA
     Route: 065
  7. VABYSMO [Suspect]
     Active Substance: FARICIMAB-SVOA
     Route: 065
  8. AFLIBERCEPT [Concomitant]
     Active Substance: AFLIBERCEPT
     Dates: start: 20170829
  9. AFLIBERCEPT [Concomitant]
     Active Substance: AFLIBERCEPT
     Dates: end: 20220317
  10. BROLUCIZUMAB [Concomitant]
     Active Substance: BROLUCIZUMAB
     Dates: start: 20200113, end: 20220107

REACTIONS (2)
  - Off label use [Unknown]
  - No adverse event [Unknown]
